FAERS Safety Report 17130118 (Version 2)
Quarter: 2020Q1

REPORT INFORMATION
  Report Type: Spontaneous
  Country: US (occurrence: US)
  Receive Date: 20191209
  Receipt Date: 20200105
  Transmission Date: 20200409
  Serious: Yes (Other)
  Sender: FDA-Public Use
  Company Number: US-PFIZER INC-2019529190

PATIENT
  Age: 79 Year
  Sex: Male
  Weight: 99.77 kg

DRUGS (1)
  1. TAFAMIDIS MEGLUMINE [Suspect]
     Active Substance: TAFAMIDIS MEGLUMINE
     Indication: AMYLOIDOSIS
     Dosage: 80 MG, UNK
     Dates: start: 201909

REACTIONS (11)
  - Dyspnoea exertional [Unknown]
  - Asthenia [Unknown]
  - Cough [Unknown]
  - Cardiac amyloidosis [Unknown]
  - Fatigue [Unknown]
  - Seasonal allergy [Unknown]
  - Oedema [Recovering/Resolving]
  - Condition aggravated [Unknown]
  - Dizziness postural [Unknown]
  - Cardiac failure [Unknown]
  - Dyspnoea [Unknown]

NARRATIVE: CASE EVENT DATE: 201909
